FAERS Safety Report 8383623-7 (Version None)
Quarter: 2012Q2

REPORT INFORMATION
  Report Type: 
  Country: None (occurrence: None)
  Receive Date: 20120524
  Receipt Date: 20120521
  Transmission Date: 20120825
  Serious: Yes (Congenital Anomaly)
  Sender: FDA-Public Use
  Company Number: US-PFIZER INC-2012059915

PATIENT
  Sex: Male
  Weight: 3.8 kg

DRUGS (1)
  1. ZOLOFT [Suspect]
     Dosage: UNK MG, UNK
     Route: 064

REACTIONS (2)
  - MATERNAL EXPOSURE TIMING UNSPECIFIED [None]
  - AORTIC VALVE STENOSIS [None]
